FAERS Safety Report 17241046 (Version 6)
Quarter: 2020Q3

REPORT INFORMATION
  Report Type: Report from Study
  Country: None (occurrence: US)
  Receive Date: 20200107
  Receipt Date: 20200807
  Transmission Date: 20201102
  Serious: Yes (Other)
  Sender: FDA-Public Use
  Company Number: US-ABBVIE-20P-163-3219200-00

PATIENT
  Sex: Female

DRUGS (3)
  1. IMBRUVICA [Suspect]
     Active Substance: IBRUTINIB
     Indication: CHRONIC LYMPHOCYTIC LEUKAEMIA
     Route: 048
     Dates: start: 20191218
  2. IMBRUVICA [Suspect]
     Active Substance: IBRUTINIB
     Indication: EXTRANODAL MARGINAL ZONE B-CELL LYMPHOMA (MALT TYPE)
     Route: 048
     Dates: start: 20191218
  3. IMBRUVICA [Suspect]
     Active Substance: IBRUTINIB
     Route: 048
     Dates: start: 201912

REACTIONS (18)
  - Headache [Unknown]
  - Melanocytic naevus [Unknown]
  - Dyspepsia [Unknown]
  - Malignant melanoma [Unknown]
  - Mucous stools [Unknown]
  - Energy increased [Recovering/Resolving]
  - Nasopharyngitis [Unknown]
  - Nail disorder [Unknown]
  - Diarrhoea [Unknown]
  - Dry eye [Unknown]
  - Biopsy [Unknown]
  - Cough [Unknown]
  - Decreased appetite [Unknown]
  - Skin lesion removal [Not Recovered/Not Resolved]
  - Biopsy skin [Unknown]
  - Seasonal allergy [Unknown]
  - Blood pressure increased [Unknown]
  - Onychoclasis [Unknown]
